FAERS Safety Report 14008130 (Version 3)
Quarter: 2018Q1

REPORT INFORMATION
  Report Type: Report from Study
  Country: None (occurrence: US)
  Receive Date: 20170925
  Receipt Date: 20180206
  Transmission Date: 20180508
  Serious: Yes (Other)
  Sender: FDA-Public Use
  Company Number: US-ABBVIE-17K-163-1912365-00

PATIENT
  Sex: Female

DRUGS (1)
  1. HUMIRA [Suspect]
     Active Substance: ADALIMUMAB
     Indication: CROHN^S DISEASE
     Route: 058

REACTIONS (8)
  - Malignant melanoma [Unknown]
  - Weight fluctuation [Unknown]
  - Hypertrichosis [Unknown]
  - Melaena [Unknown]
  - Loss of consciousness [Unknown]
  - Alopecia [Unknown]
  - Influenza [Not Recovered/Not Resolved]
  - Crohn^s disease [Not Recovered/Not Resolved]
